FAERS Safety Report 5328282-2 (Version None)
Quarter: 2007Q2

REPORT INFORMATION
  Report Type: 
  Country: None (occurrence: None)
  Receive Date: 20070518
  Receipt Date: 20070514
  Transmission Date: 20071010
  Serious: Yes (Hospitalization)
  Sender: FDA-Public Use
  Company Number: PHEH2007US05376

PATIENT
  Sex: Female

DRUGS (4)
  1. ZELNORM [Suspect]
     Indication: IRRITABLE BOWEL SYNDROME
     Dosage: 6 MG, UNK
     Route: 065
     Dates: start: 20060101, end: 20060101
  2. ZELNORM [Suspect]
     Dosage: 2 MG, UNK
     Route: 065
  3. LIPITOR [Concomitant]
     Dosage: 40 MG, UNK
  4. ACIPHEX [Concomitant]
     Dosage: 20 MG, UNK

REACTIONS (6)
  - ANXIETY [None]
  - ASTHENIA [None]
  - DIARRHOEA [None]
  - DIZZINESS [None]
  - GAIT DISTURBANCE [None]
  - SENSATION OF HEAVINESS [None]
